FAERS Safety Report 7242633-3 (Version None)
Quarter: 2011Q1

REPORT INFORMATION
  Report Type: 
  Country: None (occurrence: None)
  Receive Date: 20110125
  Receipt Date: 20110120
  Transmission Date: 20110831
  Serious: Yes (Death, Hospitalization, Other)
  Sender: FDA-Public Use
  Company Number: US-AMGEN-USASP2011000790

PATIENT
  Age: 53 Year
  Sex: Female
  Weight: 51.701 kg

DRUGS (2)
  1. NPLATE [Suspect]
     Indication: IDIOPATHIC THROMBOCYTOPENIC PURPURA
     Dosage: 3 A?G/KG, QWK
     Route: 058
     Dates: start: 20100121, end: 20101219
  2. CORTICOSTEROIDS [Concomitant]
     Indication: IDIOPATHIC THROMBOCYTOPENIC PURPURA
     Dosage: UNK
     Dates: start: 20101224

REACTIONS (6)
  - OEDEMA [None]
  - RESPIRATORY FAILURE [None]
  - PSORIASIS [None]
  - HEADACHE [None]
  - ABDOMINAL ABSCESS [None]
  - ECCHYMOSIS [None]
